FAERS Safety Report 20727196 (Version 1)
Quarter: 2022Q2

REPORT INFORMATION
  Report Type: Other
  Country: US (occurrence: None)
  Receive Date: 20220419
  Receipt Date: 20220419
  Transmission Date: 20220721
  Serious: Yes (Other)
  Sender: FDA-Public Use
  Company Number: US-Invatech-000238

PATIENT
  Age: 14 Year
  Sex: Male

DRUGS (4)
  1. CALCITRIOL [Suspect]
     Active Substance: CALCITRIOL
     Indication: Hereditary hypophosphataemic rickets
  2. PHOSPHORUS [Concomitant]
     Active Substance: PHOSPHORUS
     Indication: Hereditary hypophosphataemic rickets
     Route: 048
  3. CHOLECALCIFEROL [Concomitant]
     Active Substance: CHOLECALCIFEROL
     Indication: Vitamin D deficiency
  4. CALCITRIOL [Suspect]
     Active Substance: CALCITRIOL
     Indication: Blood parathyroid hormone

REACTIONS (3)
  - Nephrocalcinosis [Recovered/Resolved]
  - Hyperparathyroidism [Recovered/Resolved]
  - Hypertension [Recovering/Resolving]
